FAERS Safety Report 8184140-X (Version None)
Quarter: 2012Q1

REPORT INFORMATION
  Report Type: 
  Country: None (occurrence: None)
  Receive Date: 20120305
  Receipt Date: 20120227
  Transmission Date: 20120608
  Serious: Yes (Hospitalization, Disabling, Other)
  Sender: FDA-Public Use
  Company Number: JP-PFIZER INC-2012025103

PATIENT
  Age: 62 Year
  Sex: Male

DRUGS (5)
  1. AFINITOR [Suspect]
     Indication: RENAL CANCER
     Dosage: 5 MG, 1X/DAY
     Route: 048
     Dates: start: 20111116, end: 20120124
  2. AFINITOR [Suspect]
     Indication: BONE NEOPLASM MALIGNANT
  3. LYRICA [Suspect]
     Dosage: 25 MG, 2X/DAY
     Route: 048
     Dates: start: 20110805, end: 20110809
  4. BEZATOL [Suspect]
     Indication: DYSLIPIDAEMIA
     Dosage: 400 MG, 2X/DAY
     Route: 048
     Dates: start: 20110228, end: 20120125
  5. LYRICA [Suspect]
     Dosage: 75 MG/DAY
     Route: 048
     Dates: start: 20110810

REACTIONS (2)
  - BLOOD CREATINE PHOSPHOKINASE INCREASED [None]
  - RHABDOMYOLYSIS [None]
